FAERS Safety Report 23108672 (Version 3)
Quarter: 2024Q3

REPORT INFORMATION
  Report Type: Spontaneous
  Country: US (occurrence: US)
  Receive Date: 20231026
  Receipt Date: 20240704
  Transmission Date: 20241017
  Serious: No
  Sender: BIOGEN
  Company Number: US-BIOGEN-2023BI01222083

PATIENT
  Sex: Female

DRUGS (2)
  1. TYSABRI [Suspect]
     Active Substance: NATALIZUMAB
     Indication: Multiple sclerosis
     Route: 050
     Dates: start: 20140425
  2. TYSABRI [Suspect]
     Active Substance: NATALIZUMAB
     Route: 050

REACTIONS (12)
  - Prescribed underdose [Not Recovered/Not Resolved]
  - Product dose omission issue [Unknown]
  - General physical health deterioration [Unknown]
  - Alopecia [Unknown]
  - Abdominal pain upper [Unknown]
  - Gastritis [Unknown]
  - Gait disturbance [Unknown]
  - Contusion [Unknown]
  - Balance disorder [Unknown]
  - Hypoaesthesia [Unknown]
  - Asthenia [Unknown]
  - Fall [Recovered/Resolved]
